FAERS Safety Report 23037924 (Version 1)
Quarter: 2023Q4

REPORT INFORMATION
  Report Type: Spontaneous
  Country: GB (occurrence: GB)
  Receive Date: 20231006
  Receipt Date: 20231006
  Transmission Date: 20240109
  Serious: Yes (Hospitalization, Disabling, Other)
  Sender: FDA-Public Use
  Company Number: None

PATIENT
  Age: 51 Year

DRUGS (10)
  1. PRASUGREL [Suspect]
     Active Substance: PRASUGREL
     Indication: Angina pectoris
     Dosage: IS REDUCING DOSAGE HIMSELF - 1/4 TABLET A DAY OF A 5MG TABLET
     Dates: start: 20120712
  2. ASPIRIN [Concomitant]
     Active Substance: ASPIRIN
  3. CALCIUM CARBONATE\CHOLECALCIFEROL [Concomitant]
     Active Substance: CALCIUM CARBONATE\CHOLECALCIFEROL
  4. DIHYDROCODEINE [Concomitant]
     Active Substance: DIHYDROCODEINE
  5. INSULIN ASPART [Concomitant]
     Active Substance: INSULIN ASPART
  6. IRON [Concomitant]
     Active Substance: IRON
  7. LANTUS [Concomitant]
     Active Substance: INSULIN GLARGINE
  8. MORPHINE [Concomitant]
     Active Substance: MORPHINE
  9. RAMIPRIL [Concomitant]
     Active Substance: RAMIPRIL
  10. VITAMIN B COMPLEX [Concomitant]
     Active Substance: CYANOCOBALAMIN\DEXPANTHENOL\NIACINAMIDE\PYRIDOXINE HYDROCHLORIDE\RIBOFLAVIN 5^-PHOSPHATE SODIUM\THIA

REACTIONS (9)
  - Myocardial infarction [Recovered/Resolved]
  - Cartilage injury [Not Recovered/Not Resolved]
  - Palpitations [Recovered/Resolved]
  - Asthenia [Recovered/Resolved with Sequelae]
  - Muscular weakness [Not Recovered/Not Resolved]
  - Poor quality sleep [Not Recovered/Not Resolved]
  - Arthralgia [Not Recovered/Not Resolved]
  - Angina pectoris [Not Recovered/Not Resolved]
  - Feeling abnormal [Not Recovered/Not Resolved]
